FAERS Safety Report 9235978 (Version 1)
Quarter: 2013Q2

REPORT INFORMATION
  Report Type: Spontaneous
  Country: US (occurrence: US)
  Receive Date: 20130417
  Receipt Date: 20130417
  Transmission Date: 20140414
  Serious: No
  Sender: FDA-Public Use
  Company Number: US-BAYER-2013-036809

PATIENT
  Age: 79 Year
  Sex: Female

DRUGS (2)
  1. CIPRO [Suspect]
  2. VITAMINS [Concomitant]

REACTIONS (3)
  - Mobility decreased [None]
  - Myalgia [None]
  - Muscular weakness [None]
